FAERS Safety Report 12616211 (Version 3)
Quarter: 2018Q1

REPORT INFORMATION
  Report Type: Report from Study
  Country: IL (occurrence: IL)
  Receive Date: 20160802
  Receipt Date: 20180205
  Transmission Date: 20180508
  Serious: Yes (Death, Hospitalization, Other)
  Sender: FDA-Public Use
  Company Number: PHHY2016IL065011

PATIENT
  Sex: Male

DRUGS (5)
  1. SANDOSTATIN LAR DEPOT [Suspect]
     Active Substance: OCTREOTIDE ACETATE
     Indication: NEUROENDOCRINE TUMOUR
     Dosage: 40 MG, QMO
     Route: 030
     Dates: start: 20130604
  2. SANDOSTATIN LAR DEPOT [Suspect]
     Active Substance: OCTREOTIDE ACETATE
     Dosage: 40 MG (30 MG + 10 MG), QMO
     Route: 030
     Dates: start: 20160414
  3. SANDOSTATIN LAR DEPOT [Suspect]
     Active Substance: OCTREOTIDE ACETATE
     Dosage: 60 MG, Q4W
     Route: 030
     Dates: end: 20171123
  4. SANDOSTATIN LAR DEPOT [Suspect]
     Active Substance: OCTREOTIDE ACETATE
     Dosage: 40 MG, (30+10 MG), QMO
     Route: 030
     Dates: end: 20160706
  5. SANDOSTATIN LAR DEPOT [Suspect]
     Active Substance: OCTREOTIDE ACETATE
     Dosage: 40 MG (30 MG + 10 MG), QMO
     Route: 030
     Dates: start: 20160511

REACTIONS (10)
  - Burning sensation [Fatal]
  - Urinary tract infection [Recovered/Resolved]
  - Abdominal pain [Unknown]
  - 5-hydroxyindolacetic acid in urine increased [Unknown]
  - Dementia [Unknown]
  - Malignant neoplasm progression [Not Recovered/Not Resolved]
  - Blood growth hormone increased [Not Recovered/Not Resolved]
  - Flushing [Fatal]
  - Carcinoid syndrome [Fatal]
  - Pneumonia [Recovered/Resolved]
